FAERS Safety Report 10458444 (Version 1)
Quarter: 2014Q3

REPORT INFORMATION
  Report Type: Spontaneous
  Country: US (occurrence: None)
  Receive Date: 20140916
  Receipt Date: 20140916
  Transmission Date: 20150326
  Serious: No
  Sender: FDA-Public Use
  Company Number: None

PATIENT
  Age: 60 Year
  Sex: Female

DRUGS (1)
  1. BOTOX [Suspect]
     Active Substance: ONABOTULINUMTOXINA
     Indication: MUSCLE SPASMS
     Dates: start: 20140822, end: 20140822

REACTIONS (5)
  - Eye pain [None]
  - Depression [None]
  - Abnormal dreams [None]
  - Discomfort [None]
  - Eye disorder [None]

NARRATIVE: CASE EVENT DATE: 20140822
